FAERS Safety Report 17010606 (Version 1)
Quarter: 2019Q4

REPORT INFORMATION
  Report Type: Report from Study
  Country: US (occurrence: US)
  Receive Date: 20191108
  Receipt Date: 20191108
  Transmission Date: 20200122
  Serious: No
  Sender: FDA-Public Use
  Company Number: US-BEH-2019109041

PATIENT
  Age: 42 Year
  Sex: Female
  Weight: 129.71 kg

DRUGS (2)
  1. HIZENTRA [Suspect]
     Active Substance: HUMAN IMMUNOGLOBULIN G
     Dosage: 15 GRAM, TOT
     Route: 058
     Dates: start: 20191028, end: 20191028
  2. HIZENTRA [Suspect]
     Active Substance: HUMAN IMMUNOGLOBULIN G
     Indication: HYPOGAMMAGLOBULINAEMIA
     Dosage: 15 GRAM, QW
     Route: 058
     Dates: start: 20191019

REACTIONS (4)
  - Infusion site pruritus [Recovered/Resolved]
  - Flushing [Recovered/Resolved]
  - Infusion site pain [Recovered/Resolved]
  - Headache [Recovered/Resolved]

NARRATIVE: CASE EVENT DATE: 20191028
